FAERS Safety Report 23887818 (Version 1)
Quarter: 2024Q2

REPORT INFORMATION
  Report Type: Spontaneous
  Country: IN (occurrence: IN)
  Receive Date: 20240523
  Receipt Date: 20240523
  Transmission Date: 20240716
  Serious: Yes (Life-Threatening, Hospitalization, Other)
  Sender: FDA-Public Use
  Company Number: IN-RDY-LIT/IND/24/0007409

PATIENT
  Age: 41 Year
  Sex: Male

DRUGS (4)
  1. PEMETREXED [Suspect]
     Active Substance: PEMETREXED
     Indication: EGFR gene mutation
  2. PEMETREXED [Suspect]
     Active Substance: PEMETREXED
     Indication: Lung neoplasm malignant
  3. CARBOPLATIN [Suspect]
     Active Substance: CARBOPLATIN
     Indication: EGFR gene mutation
  4. CARBOPLATIN [Suspect]
     Active Substance: CARBOPLATIN
     Indication: Lung neoplasm malignant

REACTIONS (4)
  - Neutropenia [Unknown]
  - COVID-19 [Recovered/Resolved]
  - Pneumonia viral [Recovered/Resolved]
  - Product use in unapproved indication [Unknown]
